FAERS Safety Report 5827336-1 (Version None)
Quarter: 2008Q3

REPORT INFORMATION
  Report Type: 
  Country: None (occurrence: None)
  Receive Date: 20080730
  Receipt Date: 20080725
  Transmission Date: 20090109
  Serious: Yes (Hospitalization, Other)
  Sender: FDA-Public Use
  Company Number: FR-WYE-H05028508

PATIENT
  Age: 39 Year
  Sex: Female

DRUGS (1)
  1. EFFEXOR [Suspect]
     Route: 048

REACTIONS (6)
  - ANTIDEPRESSANT DRUG LEVEL INCREASED [None]
  - CONVULSION [None]
  - DRUG EXPOSURE DURING PREGNANCY [None]
  - INTENTIONAL OVERDOSE [None]
  - SINUS TACHYCARDIA [None]
  - TACHYCARDIA [None]
